FAERS Safety Report 6578165-5 (Version None)
Quarter: 2010Q1

REPORT INFORMATION
  Report Type: 
  Country: None (occurrence: None)
  Receive Date: 20100211
  Receipt Date: 20100203
  Transmission Date: 20100710
  Serious: Yes (Hospitalization)
  Sender: FDA-Public Use
  Company Number: US-ROCHE-675602

PATIENT
  Sex: Male
  Weight: 188.5 kg

DRUGS (17)
  1. TOCILIZUMAB [Suspect]
     Indication: RHEUMATOID ARTHRITIS
     Dosage: DOSE : 8 MG/KG, LAST DOSE PRIOR TO SAE 16 NOVEMBER 2009.
     Route: 042
     Dates: start: 20090717, end: 20091117
  2. MORPHINE [Concomitant]
     Dates: start: 20081104
  3. PREDNISONE [Concomitant]
     Dates: start: 20090704
  4. LOPID [Concomitant]
     Dates: start: 20070101
  5. FERGON [Concomitant]
     Dates: start: 20090501
  6. MULTIVITAMIN NOS [Concomitant]
     Dates: start: 19990101
  7. ISOSORBIDE [Concomitant]
     Dates: start: 20070101
  8. NEURONTIN [Concomitant]
     Dates: start: 20090415
  9. PEPCID [Concomitant]
     Dates: start: 20080101
  10. PROZAC [Concomitant]
     Dates: start: 19980101
  11. CLONIDINE [Concomitant]
     Dates: start: 20040101
  12. NORVASC [Concomitant]
     Dates: start: 20020101
  13. GLYBURIDE [Concomitant]
     Dates: start: 20070101
  14. VOLTAREN [Concomitant]
     Dosage: DRUG : TOPICAL VOLTREN
     Route: 061
     Dates: start: 20090806
  15. ULTRAM [Concomitant]
     Dates: start: 20090718
  16. VOLTAREN [Concomitant]
     Route: 061
     Dates: start: 20090806
  17. ULTRAM [Concomitant]
     Dates: start: 20090718

REACTIONS (7)
  - ANAEMIA [None]
  - ARTHRITIS BACTERIAL [None]
  - HAEMATOCHEZIA [None]
  - KNEE DEFORMITY [None]
  - OSTEOARTHRITIS [None]
  - OSTEOMYELITIS [None]
  - SKIN MACERATION [None]
